FAERS Safety Report 17438032 (Version 3)
Quarter: 2020Q4

REPORT INFORMATION
  Report Type: Spontaneous
  Country: ES (occurrence: ES)
  Receive Date: 20200220
  Receipt Date: 20201222
  Transmission Date: 20210113
  Serious: Yes (Death, Other)
  Sender: FDA-Public Use
  Company Number: ES-SUN PHARMACEUTICAL INDUSTRIES LTD-2020RR-237372

PATIENT
  Age: 42 Year
  Sex: Male

DRUGS (4)
  1. TRYPTOPHAN [Interacting]
     Active Substance: TRYPTOPHAN
     Dosage: UNK
     Route: 065
  2. CITALOPRAM [Interacting]
     Active Substance: CITALOPRAM HYDROBROMIDE
     Dosage: 480 MILLIGRAM, IN TOTAL
     Route: 048
  3. CITALOPRAM [Suspect]
     Active Substance: CITALOPRAM HYDROBROMIDE
     Indication: DEPRESSION
     Dosage: 20 MILLIGRAM, DAILY
     Route: 065
  4. TRYPTOPHAN [Interacting]
     Active Substance: TRYPTOPHAN
     Indication: PRODUCT USED FOR UNKNOWN INDICATION
     Dosage: 600 MILLIGRAM, DAILY
     Route: 065

REACTIONS (15)
  - Acute kidney injury [Unknown]
  - Overdose [Unknown]
  - Shock [Unknown]
  - Lactic acidosis [Unknown]
  - Acute respiratory failure [Unknown]
  - Food interaction [Unknown]
  - Serotonin syndrome [Fatal]
  - Multiple organ dysfunction syndrome [Unknown]
  - Disseminated intravascular coagulation [Unknown]
  - Leukopenia [Unknown]
  - Completed suicide [Fatal]
  - Cell death [Unknown]
  - Hypoglycaemia [Unknown]
  - Drug interaction [Unknown]
  - Rhabdomyolysis [Unknown]
